FAERS Safety Report 5055942-3 (Version None)
Quarter: 2006Q3

REPORT INFORMATION
  Report Type: 
  Country: None (occurrence: None)
  Receive Date: 20060720
  Receipt Date: 20060710
  Transmission Date: 20061208
  Serious: Yes (Death, Other)
  Sender: FDA-Public Use
  Company Number: PHBS2006IT10348

PATIENT
  Age: 61 Year
  Sex: Male

DRUGS (3)
  1. MYCOPHENOLIC ACID [Suspect]
     Indication: RENAL TRANSPLANT
     Dosage: 2 G/D
  2. STEROIDS NOS [Suspect]
     Indication: RENAL TRANSPLANT
     Dosage: 2 MG/D
  3. CYCLOSPORINE [Suspect]
     Indication: RENAL TRANSPLANT

REACTIONS (5)
  - CYTOMEGALOVIRUS INFECTION [None]
  - DYSPEPSIA [None]
  - EPSTEIN-BARR VIRUS INFECTION [None]
  - GASTRECTOMY [None]
  - GASTRIC CANCER [None]
